FAERS Safety Report 4294674-6 (Version None)
Quarter: 2004Q1

REPORT INFORMATION
  Report Type: 
  Country: None (occurrence: None)
  Receive Date: 20040213
  Receipt Date: 20040203
  Transmission Date: 20041129
  Serious: Yes (Other)
  Sender: FDA-Public Use
  Company Number: GB-GLAXOSMITHKLINE-B0322531A

PATIENT
  Age: 69 Year
  Sex: Male
  Weight: 90 kg

DRUGS (3)
  1. ZYBAN [Suspect]
     Indication: CORONARY ARTERY DISEASE
     Route: 048
     Dates: start: 20010206, end: 20010220
  2. METHYLDOPA [Concomitant]
     Route: 065
     Dates: start: 19951106
  3. GLICLAZIDE [Concomitant]
     Route: 065
     Dates: start: 19990429

REACTIONS (4)
  - DIZZINESS [None]
  - DRY MOUTH [None]
  - INSOMNIA [None]
  - LOSS OF CONSCIOUSNESS [None]
